FAERS Safety Report 7244551-3 (Version None)
Quarter: 2011Q1

REPORT INFORMATION
  Report Type: 
  Country: None (occurrence: None)
  Receive Date: 20110125
  Receipt Date: 20110113
  Transmission Date: 20110831
  Serious: Yes (Other)
  Sender: FDA-Public Use
  Company Number: US-WATSON-2011-00825

PATIENT
  Age: 54 Year
  Sex: Female

DRUGS (2)
  1. TOPIRAMATE [Suspect]
     Indication: PRODUCT USED FOR UNKNOWN INDICATION
     Dosage: 125 MG, DAILY
  2. TOPIRAMATE [Suspect]
     Dosage: 25 MG, UNK

REACTIONS (1)
  - BURNING MOUTH SYNDROME [None]
